FAERS Safety Report 7850648-7 (Version None)
Quarter: 2011Q4

REPORT INFORMATION
  Report Type: 
  Country: None (occurrence: None)
  Receive Date: 20111024
  Receipt Date: 20111018
  Transmission Date: 20120403
  Serious: Yes (Other)
  Sender: FDA-Public Use
  Company Number: 2011AP002361

PATIENT
  Age: 59 Year
  Sex: Female

DRUGS (4)
  1. PHENYTOIN [Concomitant]
  2. TOPIRAMATE [Suspect]
     Indication: CONVULSION
     Dosage: 100 MG;BID
     Dates: start: 20100616
  3. LEVETIRACETAM [Concomitant]
  4. METFORMIN HCL [Concomitant]

REACTIONS (4)
  - BLOOD GLUCOSE DECREASED [None]
  - GLYCOSYLATED HAEMOGLOBIN DECREASED [None]
  - ANAEMIA [None]
  - WEIGHT DECREASED [None]
